FAERS Safety Report 17599267 (Version 2)
Quarter: 2020Q3

REPORT INFORMATION
  Report Type: Report from Study
  Country: US (occurrence: US)
  Receive Date: 20200330
  Receipt Date: 20200720
  Transmission Date: 20201102
  Serious: Yes (Hospitalization)
  Sender: FDA-Public Use
  Company Number: NVSC2020US086994

PATIENT
  Age: 73 Year
  Sex: Female
  Weight: 61.6 kg

DRUGS (3)
  1. PROLEUKIN [Suspect]
     Active Substance: ALDESLEUKIN
     Indication: METASTATIC MALIGNANT MELANOMA
     Dosage: 66 IU (33 IU, 2 TIMES 1 IN 12 HOURS)
     Route: 042
     Dates: start: 20190702, end: 20190704
  2. FLUDARABINE PHOSPHATE. [Suspect]
     Active Substance: FLUDARABINE PHOSPHATE
     Indication: METASTATIC MALIGNANT MELANOMA
     Dosage: 30 MG, QD
     Route: 042
     Dates: start: 20190626, end: 20190627
  3. CYCLOPHOSPHAMIDE. [Suspect]
     Active Substance: CYCLOPHOSPHAMIDE
     Indication: METASTATIC MALIGNANT MELANOMA
     Dosage: 3.276 MG, QD
     Route: 042
     Dates: start: 20190624, end: 20190625

REACTIONS (2)
  - Encephalopathy [Recovered/Resolved]
  - Atrial fibrillation [Recovered/Resolved]

NARRATIVE: CASE EVENT DATE: 20190704
